FAERS Safety Report 5174465-4 (Version None)
Quarter: 2006Q4

REPORT INFORMATION
  Report Type: 
  Country: None (occurrence: None)
  Receive Date: 20061214
  Receipt Date: 20060522
  Transmission Date: 20070319
  Serious: No
  Sender: FDA-Public Use
  Company Number: US-AMGEN-KDL180530

PATIENT
  Sex: Female

DRUGS (2)
  1. ENBREL [Suspect]
     Indication: RHEUMATOID ARTHRITIS
     Route: 058
     Dates: start: 20060509
  2. ARAVA [Concomitant]
     Dates: start: 20000101

REACTIONS (5)
  - INJECTION SITE ERYTHEMA [None]
  - INJECTION SITE RASH [None]
  - INJECTION SITE URTICARIA [None]
  - INJECTION SITE WARMTH [None]
  - PRURITUS [None]
